FAERS Safety Report 25743929 (Version 1)
Quarter: 2025Q3

REPORT INFORMATION
  Report Type: Report from Study
  Country: US (occurrence: US)
  Receive Date: 20250831
  Receipt Date: 20250831
  Transmission Date: 20251020
  Serious: Yes (Other)
  Sender: ABBVIE
  Company Number: US-ABBVIE-6225906

PATIENT
  Sex: Male

DRUGS (1)
  1. VENCLEXTA [Suspect]
     Active Substance: VENETOCLAX
     Indication: Chronic lymphocytic leukaemia
     Route: 048
     Dates: start: 202412

REACTIONS (8)
  - Deep vein thrombosis [Unknown]
  - Peripheral arterial occlusive disease [Unknown]
  - Superficial vein thrombosis [Unknown]
  - Swelling [Unknown]
  - Photosensitivity reaction [Unknown]
  - Blood bilirubin increased [Unknown]
  - White blood cell count decreased [Unknown]
  - Polypectomy [Unknown]
